FAERS Safety Report 7041265-X (Version None)
Quarter: 2010Q4

REPORT INFORMATION
  Report Type: 
  Country: None (occurrence: None)
  Receive Date: 20101013
  Receipt Date: 20101001
  Transmission Date: 20110411
  Serious: Yes (Hospitalization)
  Sender: FDA-Public Use
  Company Number: PHHY2010US65938

PATIENT
  Sex: Male

DRUGS (2)
  1. SANDOSTATIN [Suspect]
     Indication: PANCREATITIS
     Dosage: UNK
  2. INSULIN [Concomitant]
     Dosage: 60 UNITS

REACTIONS (9)
  - BACK PAIN [None]
  - CHOLECYSTECTOMY [None]
  - MALAISE [None]
  - PAIN [None]
  - PANCREAS INFECTION [None]
  - PANCREATECTOMY [None]
  - PANCREATIC ABSCESS [None]
  - PANCREATIC LEAK [None]
  - PANCREATIC PSEUDOCYST [None]
